FAERS Safety Report 21101330 (Version 2)
Quarter: 2022Q3

REPORT INFORMATION
  Report Type: Spontaneous
  Country: US (occurrence: US)
  Receive Date: 20220719
  Receipt Date: 20220726
  Transmission Date: 20221026
  Serious: Yes (Other)
  Sender: FDA-Public Use
  Company Number: US-MLMSERVICE-20220705-3655189-1

PATIENT
  Age: 28 Year
  Sex: Female

DRUGS (2)
  1. TESTOSTERONE [Suspect]
     Active Substance: TESTOSTERONE
     Indication: Transgender hormonal therapy
     Dosage: UNK
  2. TESTOSTERONE [Suspect]
     Active Substance: TESTOSTERONE
     Dosage: DOSE ADJUSTMENT

REACTIONS (2)
  - Endometrial hyperplasia [Recovered/Resolved]
  - Off label use [Unknown]
